FAERS Safety Report 24361755 (Version 1)
Quarter: 2024Q3

REPORT INFORMATION
  Report Type: Spontaneous
  Country: DE (occurrence: DE)
  Receive Date: 20240925
  Receipt Date: 20240925
  Transmission Date: 20241017
  Serious: Yes (Hospitalization, Other)
  Sender: BRISTOL MYERS SQUIBB
  Company Number: DE-ABBVIE-5918787

PATIENT
  Sex: Male

DRUGS (6)
  1. AZACITIDINE [Suspect]
     Active Substance: AZACITIDINE
     Indication: Acute myeloid leukaemia
     Dates: start: 202302
  2. PIPERACILLIN [Suspect]
     Active Substance: PIPERACILLIN
     Indication: Product used for unknown indication
  3. VENETOCLAX [Suspect]
     Active Substance: VENETOCLAX
     Indication: Acute myeloid leukaemia
     Route: 048
  4. VENETOCLAX [Suspect]
     Active Substance: VENETOCLAX
     Route: 048
  5. VENETOCLAX [Suspect]
     Active Substance: VENETOCLAX
     Route: 048
     Dates: start: 202302
  6. VENETOCLAX [Suspect]
     Active Substance: VENETOCLAX
     Dosage: VENETOCLAX DOSE REDUCTION
     Route: 048
     Dates: start: 202303

REACTIONS (7)
  - Chronic obstructive pulmonary disease [Unknown]
  - COVID-19 [Unknown]
  - Pneumonia [Unknown]
  - Haematotoxicity [Unknown]
  - Pancytopenia [Unknown]
  - Pneumonia influenzal [Unknown]
  - Anaphylactic shock [Unknown]

NARRATIVE: CASE EVENT DATE: 20230201
